FAERS Safety Report 6888197-5 (Version None)
Quarter: 2010Q3

REPORT INFORMATION
  Report Type: 
  Country: None (occurrence: None)
  Receive Date: 20100730
  Receipt Date: 20100723
  Transmission Date: 20110219
  Serious: Yes (Other)
  Sender: FDA-Public Use
  Company Number: US-AMGEN-QUU426606

PATIENT
  Sex: Female

DRUGS (2)
  1. ENBREL [Suspect]
     Indication: RHEUMATOID ARTHRITIS
     Route: 058
     Dates: start: 20040901
  2. METHOTREXATE [Concomitant]
     Dates: start: 20040901

REACTIONS (6)
  - ARTHRALGIA [None]
  - BLOOD COUNT ABNORMAL [None]
  - NIGHT SWEATS [None]
  - PAIN IN EXTREMITY [None]
  - SINUSITIS [None]
  - URINARY TRACT INFECTION [None]
